FAERS Safety Report 6250284-2 (Version None)
Quarter: 2009Q2

REPORT INFORMATION
  Report Type: 
  Country: None (occurrence: None)
  Receive Date: 20090626
  Receipt Date: 20090626
  Transmission Date: 20091009
  Serious: No
  Sender: FDA-Public Use
  Company Number: None

PATIENT
  Sex: Female
  Weight: 55 kg

DRUGS (4)
  1. DROSPIRENONE AND ETHINYL ESTRADIOL [Suspect]
     Indication: ACNE
     Dosage: ONE TAB DAILY PO
     Route: 048
  2. DROSPIRENONE AND ETHINYL ESTRADIOL [Suspect]
     Indication: CONTRACEPTION
     Dosage: ONE TAB DAILY PO
     Route: 048
  3. ATIVAN [Concomitant]
  4. CLONAZEPAM [Concomitant]

REACTIONS (3)
  - ACNE [None]
  - CONDITION AGGRAVATED [None]
  - PRODUCT SUBSTITUTION ISSUE [None]
